FAERS Safety Report 8989970 (Version 1)
Quarter: 2012Q4

REPORT INFORMATION
  Report Type: 
  Country: DE (occurrence: DE)
  Receive Date: 20121228
  Receipt Date: 20121228
  Transmission Date: 20130627
  Serious: Yes (Hospitalization, Other)
  Sender: FDA-Public Use
  Company Number: DE-JNJFOC-20121208445

PATIENT
  Sex: Female

DRUGS (3)
  1. DOLORMIN MIGRANE [Suspect]
     Route: 048
  2. IBUPROFEN LYSINE [Suspect]
     Indication: MIGRAINE
     Dosage: 684 mg (equivalent to 400 mg of ibuprofen) for several years
     Route: 048
  3. IMIGRAN [Concomitant]
     Route: 045

REACTIONS (2)
  - Gastritis [Unknown]
  - Gastric ulcer [Unknown]
